FAERS Safety Report 6516600-9 (Version None)
Quarter: 2009Q4

REPORT INFORMATION
  Report Type: 
  Country: None (occurrence: None)
  Receive Date: 20091223
  Receipt Date: 20091215
  Transmission Date: 20100525
  Serious: Yes (Life-Threatening, Hospitalization)
  Sender: FDA-Public Use
  Company Number: NL-AMGEN-QUU380525

PATIENT
  Sex: Male

DRUGS (10)
  1. ARANESP [Suspect]
     Indication: RENAL FAILURE CHRONIC
     Route: 058
     Dates: start: 20090118, end: 20091001
  2. ALFACALCIDOL [Concomitant]
     Route: 048
     Dates: start: 20090118
  3. AMLODIPINE [Concomitant]
     Route: 048
     Dates: start: 20090118
  4. FERROFUMARAT [Concomitant]
     Route: 048
     Dates: start: 20090118
  5. FUROSEMIDE [Concomitant]
     Route: 048
  6. METOPROLOL TARTRATE [Concomitant]
     Route: 048
  7. NULYTELY [Concomitant]
     Route: 048
  8. TAMSULOSIN HCL [Concomitant]
     Route: 048
  9. ASPIRIN AND DIPYRIDAMOLE [Concomitant]
     Dates: end: 20091006
  10. ENALAPRIL MALEATE [Concomitant]
     Route: 048
     Dates: end: 20091006

REACTIONS (1)
  - APLASTIC ANAEMIA [None]
